FAERS Safety Report 21935080 (Version 2)
Quarter: 2023Q1

REPORT INFORMATION
  Report Type: Other
  Country: AT (occurrence: AT)
  Receive Date: 20230201
  Receipt Date: 20230221
  Transmission Date: 20230417
  Serious: Yes (Other)
  Sender: FDA-Public Use
  Company Number: AT-SERVIER-S22007785

PATIENT
  Age: 73 Year
  Sex: Female
  Weight: 71 kg

DRUGS (16)
  1. LONSURF [Suspect]
     Active Substance: TIPIRACIL HYDROCHLORIDE\TRIFLURIDINE
     Indication: Colorectal cancer metastatic
     Dosage: CYCLE 1; 35 MG/M2, BID (55 MG, BID) ON DAYS 1-5 AND 8-12 OF EACH 28-DAY CYCLE
     Route: 065
     Dates: start: 20220627, end: 20220708
  2. LONSURF [Suspect]
     Active Substance: TIPIRACIL HYDROCHLORIDE\TRIFLURIDINE
     Dosage: CYCLE 3; 35 MG/M2, BID (55 MG, BID) ON DAYS 1-5 AND 8-12 OF EACH 28-DAY CYCLE
     Route: 065
     Dates: start: 20220829, end: 20220909
  3. LONSURF [Suspect]
     Active Substance: TIPIRACIL HYDROCHLORIDE\TRIFLURIDINE
     Dosage: CYCLE 4; 35 MG/M2, BID (55 MG, BID) ON DAYS 1-5 AND 8-12 OF EACH 28-DAY CYCLE
     Route: 065
     Dates: start: 20221003, end: 20221014
  4. LONSURF [Suspect]
     Active Substance: TIPIRACIL HYDROCHLORIDE\TRIFLURIDINE
     Dosage: CYCLE 2; 35 MG/M2, BID (55 MG, BID) ON DAYS 1-5 AND 8-12 OF EACH 28-DAY CYCLE
     Route: 065
     Dates: start: 20220725, end: 20220805
  5. LONSURF [Suspect]
     Active Substance: TIPIRACIL HYDROCHLORIDE\TRIFLURIDINE
     Dosage: CYCLE 5; 35 MG/M2, BID (55 MG, BID) ON DAYS 1-5 AND 8-12 OF EACH 28-DAY CYCLE
     Route: 065
     Dates: start: 20221031, end: 20221111
  6. LONSURF [Suspect]
     Active Substance: TIPIRACIL HYDROCHLORIDE\TRIFLURIDINE
     Dosage: 35 MG/M2, BID (55 MG, BID) ON DAYS 1-5 AND 8-12 OF EACH 28-DAY CYCLE
     Route: 065
     Dates: start: 20221227, end: 20230107
  7. BEVACIZUMAB [Suspect]
     Active Substance: BEVACIZUMAB
     Indication: Colorectal cancer metastatic
     Dosage: 5 MG/KG
     Route: 065
     Dates: start: 20220627
  8. ELIQUIS [Concomitant]
     Active Substance: APIXABAN
     Indication: Thrombosis
     Dosage: 5 MG, BID
     Dates: start: 20220207
  9. NOVALGIN (AUSTRIA) [Concomitant]
     Indication: Pain
     Dosage: 500 MG, PRN
     Dates: start: 20210802
  10. LOPERAMIDE HYDROCHLORIDE [Concomitant]
     Active Substance: LOPERAMIDE HYDROCHLORIDE
     Indication: Diarrhoea
     Dosage: 2 MG, PRN
     Dates: start: 20220112
  11. COLDISTOP [Concomitant]
     Indication: Prophylaxis
     Dosage: UNK, PRN
  12. PANTOPRAZOLE SODIUM [Concomitant]
     Active Substance: PANTOPRAZOLE SODIUM
     Indication: Prophylaxis
     Dosage: 40 MG, QD
     Dates: start: 20220112
  13. BROTIZOLAM [Concomitant]
     Active Substance: BROTIZOLAM
     Indication: Initial insomnia
     Dosage: 0.25 MG, PRN
     Dates: start: 20201127
  14. LEVOTHYROXINE SODIUM [Concomitant]
     Active Substance: LEVOTHYROXINE SODIUM
     Indication: Goitre
     Dosage: 50MCG, QD
     Dates: start: 20201002
  15. ZOFRAN [Concomitant]
     Active Substance: ONDANSETRON HYDROCHLORIDE
     Indication: Nausea
     Dosage: 8 MG, PRN
     Dates: start: 20201013
  16. CARVEDILOL [Concomitant]
     Active Substance: CARVEDILOL
     Indication: Hypertension
     Dosage: 25 MG, QD
     Dates: start: 20200831

REACTIONS (4)
  - Anaemia [Recovered/Resolved]
  - Neutropenia [Recovered/Resolved]
  - Leukopenia [Recovered/Resolved]
  - Off label use [Unknown]

NARRATIVE: CASE EVENT DATE: 20220627
